FAERS Safety Report 23531699 (Version 2)
Quarter: 2024Q1

REPORT INFORMATION
  Report Type: Spontaneous
  Country: CL (occurrence: CL)
  Receive Date: 20240216
  Receipt Date: 20240222
  Transmission Date: 20240410
  Serious: No
  Sender: FDA-Public Use
  Company Number: CL-PFIZER INC-PV202400012059

PATIENT
  Age: 48 Year
  Sex: Female

DRUGS (4)
  1. ENBREL [Suspect]
     Active Substance: ETANERCEPT
     Indication: Rheumatoid arthritis
     Dosage: 50 MG, WEEKLY (THURSDAY)
     Route: 058
     Dates: start: 202305
  2. METHOTREXATE [Concomitant]
     Active Substance: METHOTREXATE
     Dosage: (8 PILLS PER WEEK (EVERY MONDAY): 4 IN THE MORNING, 4 IN THE EVENING)
     Route: 048
  3. PREDNISONE [Concomitant]
     Active Substance: PREDNISONE
     Dosage: UNK, DAILY
     Route: 048
  4. FOLIC ACID [Concomitant]
     Active Substance: FOLIC ACID
     Dosage: UNKNOWN DOSE, WEEKLY( EVERY MONDAY)
     Route: 048

REACTIONS (3)
  - Wrong technique in device usage process [Unknown]
  - Injury associated with device [Unknown]
  - Product dose omission issue [Unknown]

NARRATIVE: CASE EVENT DATE: 20240125
